APPROVED DRUG PRODUCT: FEXOFENADINE HYDROCHLORIDE
Active Ingredient: FEXOFENADINE HYDROCHLORIDE
Strength: 60MG
Dosage Form/Route: TABLET;ORAL
Application: A219032 | Product #001
Applicant: CONTRACT PHARMACAL CORP
Approved: Feb 28, 2025 | RLD: No | RS: No | Type: OTC